FAERS Safety Report 14045391 (Version 3)
Quarter: 2017Q4

REPORT INFORMATION
  Report Type: Spontaneous
  Country: US (occurrence: US)
  Receive Date: 20171005
  Receipt Date: 20171026
  Transmission Date: 20180321
  Serious: Yes (Other)
  Sender: FDA-Public Use
  Company Number: US-AMGEN-USASP2017148448

PATIENT
  Age: 39 Year
  Sex: Female
  Weight: 70.3 kg

DRUGS (3)
  1. LEFLUNOMIDE. [Suspect]
     Active Substance: LEFLUNOMIDE
     Indication: RHEUMATOID ARTHRITIS
     Dosage: 20 MG, TID
     Route: 065
     Dates: start: 20140507, end: 20170720
  2. ENBREL [Suspect]
     Active Substance: ETANERCEPT
     Indication: RHEUMATOID ARTHRITIS
     Dosage: 50 MG, QWK
     Route: 058
     Dates: start: 201706, end: 2017
  3. INH [Suspect]
     Active Substance: ISONIAZID
     Indication: TUBERCULIN TEST POSITIVE
     Dosage: 300 MG, TID
     Route: 065
     Dates: start: 20170309, end: 20170720

REACTIONS (9)
  - Red blood cell sedimentation rate increased [Unknown]
  - Tuberculin test positive [Unknown]
  - Aspartate aminotransferase increased [Recovered/Resolved]
  - Drug effect decreased [Unknown]
  - Decreased immune responsiveness [Unknown]
  - Carbon dioxide increased [Recovered/Resolved]
  - Alanine aminotransferase increased [Recovered/Resolved]
  - White blood cell count decreased [Recovered/Resolved]
  - Neutrophil count decreased [Recovered/Resolved]

NARRATIVE: CASE EVENT DATE: 2017
